FAERS Safety Report 4839905-6 (Version None)
Quarter: 2005Q4

REPORT INFORMATION
  Report Type: 
  Country: None (occurrence: None)
  Receive Date: 20051129
  Receipt Date: 20051117
  Transmission Date: 20060501
  Serious: Yes (Other)
  Sender: FDA-Public Use
  Company Number: US-ROCHE-425491

PATIENT
  Age: 41 Year
  Sex: Female

DRUGS (2)
  1. PEGASYS [Suspect]
     Dosage: ROUTE = INJECTION
     Route: 050
     Dates: start: 20050927, end: 20050927
  2. RIBAVIRIN [Suspect]
     Route: 048
     Dates: start: 20050927, end: 20051015

REACTIONS (4)
  - MALAISE [None]
  - PARANOIA [None]
  - TREMOR [None]
  - VOMITING [None]
